FAERS Safety Report 20757672 (Version 1)
Quarter: 2022Q2

REPORT INFORMATION
  Report Type: Spontaneous
  Country: US (occurrence: None)
  Receive Date: 20220427
  Receipt Date: 20220427
  Transmission Date: 20220720
  Serious: Yes (Hospitalization)
  Sender: FDA-Public Use
  Company Number: None

PATIENT
  Age: 63 Year
  Sex: Male
  Weight: 107.41 kg

DRUGS (18)
  1. WELIREG [Suspect]
     Active Substance: BELZUTIFAN
     Indication: Renal cancer
     Dosage: FREQUENCY : DAILY;?
     Route: 048
  2. ASPIRIN [Concomitant]
     Active Substance: ASPIRIN
  3. CALCIUM [Concomitant]
     Active Substance: CALCIUM
  4. FLONASE [Concomitant]
     Active Substance: FLUTICASONE PROPIONATE
  5. HYDROCORTISONE [Concomitant]
     Active Substance: HYDROCORTISONE
  6. LISINOPRIL [Concomitant]
     Active Substance: LISINOPRIL
  7. MAGNESIUM OXIDE [Concomitant]
     Active Substance: MAGNESIUM OXIDE
  8. METFORMIN [Concomitant]
     Active Substance: METFORMIN HYDROCHLORIDE
  9. METOPROLOL [Concomitant]
     Active Substance: METOPROLOL
  10. MUPIROCIN [Concomitant]
     Active Substance: MUPIROCIN
  11. OMEPRAZOLE [Concomitant]
     Active Substance: OMEPRAZOLE
  12. ONDANSETRON [Concomitant]
     Active Substance: ONDANSETRON
  13. PREDNISONE [Concomitant]
     Active Substance: PREDNISONE
  14. ROSUVASTATIN [Concomitant]
     Active Substance: ROSUVASTATIN
  15. TORESMIDE [Concomitant]
  16. TRIAMCINOLONE [Concomitant]
     Active Substance: TRIAMCINOLONE
  17. XANAX [Concomitant]
     Active Substance: ALPRAZOLAM
  18. ZYRTEC [Concomitant]
     Active Substance: CETIRIZINE HYDROCHLORIDE

REACTIONS (2)
  - Full blood count abnormal [None]
  - Adverse drug reaction [None]
